FAERS Safety Report 4389261-5 (Version None)
Quarter: 2004Q2

REPORT INFORMATION
  Report Type: 
  Country: None (occurrence: None)
  Receive Date: 20040628
  Receipt Date: 20040614
  Transmission Date: 20050107
  Serious: Yes (Hospitalization)
  Sender: FDA-Public Use
  Company Number: 04P-056-0263965-00

PATIENT
  Age: 72 Year
  Sex: Male

DRUGS (6)
  1. HUMIRA [Suspect]
     Indication: RHEUMATOID ARTHRITIS
     Dosage: 40 MG SUBCUTANEOUS
     Route: 058
     Dates: start: 20030615, end: 20040415
  2. PREDNISONE [Suspect]
     Indication: RHEUMATOID ARTHRITIS
     Dosage: 6 MG, 1 IN 1 D, PER ORAL
     Route: 048
  3. DULCIPHAK [Concomitant]
  4. FLECAINIDE ACETATE [Concomitant]
  5. CELIPROLOL [Concomitant]
  6. PANTOPRAZOLE [Concomitant]

REACTIONS (9)
  - ANOREXIA [None]
  - ASTHENIA [None]
  - GAMMA-GLUTAMYLTRANSFERASE ABNORMAL [None]
  - GASTROENTERITIS [None]
  - INTERSTITIAL LUNG DISEASE [None]
  - LEUKOPENIA [None]
  - MICROCYTIC ANAEMIA [None]
  - THROMBOCYTOPENIA [None]
  - TUBERCULOSIS [None]
